FAERS Safety Report 19788742 (Version 1)
Quarter: 2021Q3

REPORT INFORMATION
  Report Type: Spontaneous
  Country: US (occurrence: US)
  Receive Date: 20210904
  Receipt Date: 20210904
  Transmission Date: 20211014
  Serious: Yes (Other)
  Sender: FDA-Public Use
  Company Number: US-DRREDDYS-SPO/USA/21/0139610

PATIENT
  Age: 29 Year
  Sex: Female

DRUGS (2)
  1. ZENATANE [Suspect]
     Active Substance: ISOTRETINOIN
     Indication: PRODUCT USED FOR UNKNOWN INDICATION
     Dosage: RMA ISSUE DATE: 22/MAY/2021 10:57:04 AM, 25/JUNE2021 12:37:37 PM, 31/JULY/2021 12:22:22 PM
     Dates: start: 20201204, end: 20210830
  2. ZENATANE [Suspect]
     Active Substance: ISOTRETINOIN
     Dosage: RMA ISSUE DATE: 7/DEC/2020 3:34:26 PM

REACTIONS (3)
  - Exposure during pregnancy [Unknown]
  - Dry skin [Unknown]
  - Product administration error [Unknown]

NARRATIVE: CASE EVENT DATE: 2021
